FAERS Safety Report 19971618 (Version 1)
Quarter: 2021Q4

REPORT INFORMATION
  Report Type: Spontaneous
  Country: US (occurrence: US)
  Receive Date: 20211020
  Receipt Date: 20211020
  Transmission Date: 20220303
  Serious: Yes (Life-Threatening, Hospitalization, Other)
  Sender: FDA-Public Use
  Company Number: US-SCIEGENPHARMA-2021SCILIT00893

PATIENT
  Age: 15 Year
  Sex: Female

DRUGS (2)
  1. BUPROPION HYDROCHLORIDE [Suspect]
     Active Substance: BUPROPION HYDROCHLORIDE
     Indication: Product used for unknown indication
     Route: 048
  2. SERTRALINE [Suspect]
     Active Substance: SERTRALINE HYDROCHLORIDE
     Indication: Product used for unknown indication
     Route: 048

REACTIONS (6)
  - Toxic encephalopathy [Recovering/Resolving]
  - Generalised tonic-clonic seizure [Recovering/Resolving]
  - Coma [Recovered/Resolved]
  - Drug interaction [Recovering/Resolving]
  - Intentional product misuse [Recovering/Resolving]
  - Intentional overdose [Recovering/Resolving]
